FAERS Safety Report 5034029-X (Version None)
Quarter: 2006Q2

REPORT INFORMATION
  Report Type: 
  Country: None (occurrence: None)
  Receive Date: 20060515
  Receipt Date: 20060321
  Transmission Date: 20061013
  Serious: Yes (Other)
  Sender: FDA-Public Use
  Company Number: 26049

PATIENT
  Sex: Male

DRUGS (1)
  1. ACETYLCYSTEINE [Suspect]
     Dosage: 1ML/EVERY 4-6 HRS.

REACTIONS (1)
  - DRUG INEFFECTIVE [None]
